FAERS Safety Report 5957095-3 (Version None)
Quarter: 2008Q4

REPORT INFORMATION
  Report Type: 
  Country: None (occurrence: None)
  Receive Date: 20081118
  Receipt Date: 20081112
  Transmission Date: 20090506
  Serious: Yes (Hospitalization)
  Sender: FDA-Public Use
  Company Number: PHHY2008FR20375

PATIENT
  Sex: Male
  Weight: 86.4 kg

DRUGS (3)
  1. LAMISIL [Suspect]
     Dosage: 250 MG/DAY
     Dates: start: 20080723, end: 20080901
  2. LAMISIL [Suspect]
     Indication: FUNGAL INFECTION
  3. LITHIUM [Concomitant]
     Indication: BIPOLAR DISORDER
     Dosage: 1200 MG/DAY
     Dates: start: 20080617

REACTIONS (1)
  - MANIA [None]
